FAERS Safety Report 5033771-4 (Version None)
Quarter: 2006Q2

REPORT INFORMATION
  Report Type: 
  Country: None (occurrence: None)
  Receive Date: 20060620
  Receipt Date: 20060613
  Transmission Date: 20061013
  Serious: Yes (Hospitalization)
  Sender: FDA-Public Use
  Company Number: 200611928GDS

PATIENT
  Age: 64 Year
  Sex: Female
  Weight: 48 kg

DRUGS (6)
  1. SORAFENIB [Suspect]
     Indication: RENAL CELL CARCINOMA STAGE UNSPECIFIED
     Dosage: 400 MG, BID, ORAL
     Route: 048
     Dates: start: 20060418, end: 20060516
  2. SORAFENIB [Suspect]
     Indication: RENAL CELL CARCINOMA STAGE UNSPECIFIED
     Dosage: 400 MG, BID, ORAL
     Route: 048
     Dates: start: 20060516
  3. SORAFENIB [Suspect]
  4. NOVOMIX [INSULIN ASPART] [Concomitant]
  5. LIVIAL [Concomitant]
  6. ENALAPRIL [Concomitant]

REACTIONS (1)
  - CONVULSION [None]
